FAERS Safety Report 16341663 (Version 6)
Quarter: 2020Q2

REPORT INFORMATION
  Report Type: Spontaneous
  Country: US (occurrence: US)
  Receive Date: 20190522
  Receipt Date: 20200415
  Transmission Date: 20200713
  Serious: Yes (Other)
  Sender: FDA-Public Use
  Company Number: US-AMGEN-USASP2019077741

PATIENT
  Age: 62 Year
  Sex: Male
  Weight: 92.5 kg

DRUGS (4)
  1. ZANTAC [Concomitant]
     Active Substance: RANITIDINE HYDROCHLORIDE
     Dosage: 150 MILLIGRAM
     Route: 048
  2. REPATHA [Suspect]
     Active Substance: EVOLOCUMAB
     Indication: BLOOD CHOLESTEROL ABNORMAL
     Dosage: 140 MILLIGRAM, TWICE PER WEEK
     Route: 058
     Dates: start: 2018
  3. REPATHA [Suspect]
     Active Substance: EVOLOCUMAB
     Indication: TYPE IIA HYPERLIPIDAEMIA
     Dosage: 140 MILLIGRAM, QMO
     Route: 058
  4. REPATHA [Suspect]
     Active Substance: EVOLOCUMAB
     Indication: HYPERCHOLESTEROLAEMIA
     Dosage: 140 MILLIGRAM, Q2WK
     Route: 058

REACTIONS (7)
  - Gastrooesophageal reflux disease [Unknown]
  - Off label use [Unknown]
  - Viral upper respiratory tract infection [Recovered/Resolved]
  - Injection site pain [Recovering/Resolving]
  - Presyncope [Recovered/Resolved]
  - Product storage error [Unknown]
  - Anxiety [Unknown]

NARRATIVE: CASE EVENT DATE: 20190515
